FAERS Safety Report 12443524 (Version 5)
Quarter: 2016Q3

REPORT INFORMATION
  Report Type: Spontaneous
  Country: BR (occurrence: BR)
  Receive Date: 20160607
  Receipt Date: 20160713
  Transmission Date: 20161109
  Serious: Yes (Hospitalization, Other)
  Sender: FDA-Public Use
  Company Number: BR-ABBVIE-16P-020-1646045-00

PATIENT
  Age: 14 Year
  Sex: Male

DRUGS (6)
  1. VALPAKINE [Suspect]
     Active Substance: VALPROATE SODIUM
     Indication: AUTISM
     Route: 048
     Dates: start: 201504
  2. LAMOTRIGINE. [Suspect]
     Active Substance: LAMOTRIGINE
     Indication: SEIZURE
     Route: 048
  3. VALPAKINE [Suspect]
     Active Substance: VALPROATE SODIUM
     Route: 048
  4. VALPAKINE [Suspect]
     Active Substance: VALPROATE SODIUM
     Indication: SEIZURE
     Route: 048
     Dates: start: 20150406
  5. LAMOTRIGINE. [Concomitant]
     Active Substance: LAMOTRIGINE
     Indication: PRODUCT USED FOR UNKNOWN INDICATION
     Dates: start: 20150520
  6. NEULEPTIL [Concomitant]
     Active Substance: PERICIAZINE
     Indication: PRODUCT USED FOR UNKNOWN INDICATION

REACTIONS (14)
  - Drug interaction [Unknown]
  - Coating in mouth [Recovering/Resolving]
  - Retching [Recovering/Resolving]
  - Vomiting [Recovering/Resolving]
  - Nausea [Recovering/Resolving]
  - Abdominal pain upper [Recovering/Resolving]
  - Prescribed overdose [Recovering/Resolving]
  - Fall [Recovering/Resolving]
  - Product physical issue [Recovering/Resolving]
  - Head injury [Recovering/Resolving]
  - Malaise [Recovering/Resolving]
  - Seizure [Recovering/Resolving]
  - Pruritus [Recovering/Resolving]
  - Lip discolouration [Recovering/Resolving]

NARRATIVE: CASE EVENT DATE: 20160529
